FAERS Safety Report 24434909 (Version 4)
Quarter: 2025Q2

REPORT INFORMATION
  Report Type: Report from Study
  Country: US (occurrence: US)
  Receive Date: 20241014
  Receipt Date: 20250604
  Transmission Date: 20250716
  Serious: No
  Sender: SUNOVION
  Company Number: US-SUMITOMO PHARMA SWITZERLAND GMBH-2024SPA003346

PATIENT

DRUGS (2)
  1. ORGOVYX [Suspect]
     Active Substance: RELUGOLIX
     Indication: Prostate cancer
     Dosage: 120 MG, QD
     Route: 048
     Dates: start: 20240912
  2. ABIRATERONE [Suspect]
     Active Substance: ABIRATERONE
     Route: 065

REACTIONS (3)
  - Somnolence [Unknown]
  - Fatigue [Unknown]
  - Incorrect dose administered [Unknown]
